FAERS Safety Report 5014200-3 (Version None)
Quarter: 2006Q2

REPORT INFORMATION
  Report Type: 
  Country: None (occurrence: None)
  Receive Date: 20060530
  Receipt Date: 20060524
  Transmission Date: 20061013
  Serious: Yes (Death)
  Sender: FDA-Public Use
  Company Number: MY-MERCK-0605MYS00007

PATIENT
  Age: 15 Year
  Sex: Male

DRUGS (1)
  1. CANCIDAS [Suspect]
     Indication: SYSTEMIC MYCOSIS
     Route: 041
     Dates: start: 20060501

REACTIONS (1)
  - ACUTE LYMPHOCYTIC LEUKAEMIA [None]
